FAERS Safety Report 5854384-8 (Version None)
Quarter: 2008Q3

REPORT INFORMATION
  Report Type: 
  Country: None (occurrence: None)
  Receive Date: 20080822
  Receipt Date: 20080312
  Transmission Date: 20090109
  Serious: No
  Sender: FDA-Public Use
  Company Number: US-BOEHRINGER INGELHEIM GMBH, GERMANY-2008-BP-00104BP

PATIENT
  Sex: Female

DRUGS (10)
  1. CATAPRES-TTS-1 [Suspect]
     Indication: HYPERTENSION
     Route: 061
     Dates: start: 20071025, end: 20080129
  2. CATAPRES-TTS-1 [Suspect]
     Indication: BLOOD PRESSURE INADEQUATELY CONTROLLED
  3. COZAAR [Concomitant]
     Indication: HYPERTENSION
     Route: 048
  4. DIGOXIN [Concomitant]
     Indication: HYPERTENSION
     Route: 048
  5. METOPROLOL [Concomitant]
     Indication: HYPERTENSION
     Route: 048
  6. HYDROCHLOROTHIAZIDE [Concomitant]
     Indication: HYPERTENSION
     Route: 048
  7. KLOR-CON [Concomitant]
     Indication: HYPERTENSION
     Route: 048
  8. COUMADIN [Concomitant]
     Route: 048
  9. ASPIRIN [Concomitant]
  10. TYLENOL [Concomitant]
     Dosage: 1 OR 2 A DAY

REACTIONS (8)
  - APPLICATION SITE DISCHARGE [None]
  - APPLICATION SITE ERYTHEMA [None]
  - APPLICATION SITE PRURITUS [None]
  - APPLICATION SITE RASH [None]
  - APPLICATION SITE VESICLES [None]
  - BLOOD PRESSURE INCREASED [None]
  - CONSTIPATION [None]
  - DERMATITIS CONTACT [None]
